FAERS Safety Report 4331913-7 (Version None)
Quarter: 2004Q2

REPORT INFORMATION
  Report Type: 
  Country: None (occurrence: None)
  Receive Date: 20040405
  Receipt Date: 20030319
  Transmission Date: 20050107
  Serious: Yes (Other)
  Sender: FDA-Public Use
  Company Number: US-GLAXOSMITHKLINE-A0401032A

PATIENT
  Age: 37 Year
  Sex: Male

DRUGS (1)
  1. SEREVENT [Suspect]
     Indication: ASTHMA
     Route: 055
     Dates: end: 20030318

REACTIONS (2)
  - CONVULSION [None]
  - OVERDOSE [None]
